FAERS Safety Report 12281076 (Version 3)
Quarter: 2016Q2

REPORT INFORMATION
  Report Type: Spontaneous
  Country: US (occurrence: US)
  Receive Date: 20160419
  Receipt Date: 20160429
  Transmission Date: 20160815
  Serious: No
  Sender: FDA-Public Use
  Company Number: US-BIOGEN-2016BI00210963

PATIENT
  Age: 64 Year
  Sex: Female

DRUGS (2)
  1. AVONEX [Suspect]
     Active Substance: INTERFERON BETA-1A
     Route: 065
     Dates: start: 20160417
  2. AVONEX [Suspect]
     Active Substance: INTERFERON BETA-1A
     Indication: MULTIPLE SCLEROSIS
     Route: 065
     Dates: start: 19971201, end: 20090101

REACTIONS (9)
  - Paranoia [Unknown]
  - Feeling cold [Recovered/Resolved]
  - General symptom [Not Recovered/Not Resolved]
  - Phobia [Not Recovered/Not Resolved]
  - Epigastric discomfort [Recovered/Resolved]
  - Abdominal discomfort [Not Recovered/Not Resolved]
  - Influenza like illness [Recovered/Resolved]
  - Pain [Not Recovered/Not Resolved]
  - Nausea [Recovered/Resolved]

NARRATIVE: CASE EVENT DATE: 201512
